FAERS Safety Report 4918907-5 (Version None)
Quarter: 2006Q1

REPORT INFORMATION
  Report Type: 
  Country: None (occurrence: None)
  Receive Date: 20060222
  Receipt Date: 20060217
  Transmission Date: 20060701
  Serious: Yes (Hospitalization)
  Sender: FDA-Public Use
  Company Number: AU-MERCK-0602AUS00168

PATIENT
  Age: 62 Year
  Sex: Female

DRUGS (2)
  1. FOSAMAX [Suspect]
     Indication: OSTEOPOROSIS
     Route: 048
     Dates: start: 19990101, end: 20010101
  2. FOSAMAX [Suspect]
     Route: 048
     Dates: start: 20010101

REACTIONS (8)
  - GASTROINTESTINAL DISORDER [None]
  - GASTROINTESTINAL PAIN [None]
  - GASTROOESOPHAGEAL REFLUX DISEASE [None]
  - JOINT STIFFNESS [None]
  - MUSCULOSKELETAL CHEST PAIN [None]
  - PANCREATIC DISORDER [None]
  - SPLEEN DISORDER [None]
  - TOOTH DISORDER [None]
